FAERS Safety Report 8164307-7 (Version None)
Quarter: 2012Q1

REPORT INFORMATION
  Report Type: 
  Country: None (occurrence: None)
  Receive Date: 20120224
  Receipt Date: 20110711
  Transmission Date: 20120608
  Serious: No
  Sender: FDA-Public Use
  Company Number: US-MYLANLABS-2011S1014660

PATIENT
  Age: 49 Year
  Sex: Male

DRUGS (6)
  1. HYDROCHLOROTHIAZIDE [Suspect]
     Indication: HYPERTENSION
     Dosage: 25MG DAILY
     Route: 065
  2. CHLORTHALIDONE [Suspect]
     Indication: HYPERTENSION
  3. LOSARTAN POTASSIUM [Suspect]
     Indication: HYPERTENSION
     Dosage: 25MG DAILY
     Route: 065
  4. ATENOLOL [Suspect]
     Indication: HYPERTENSION
     Dosage: 50MG DAILY
     Route: 065
  5. NEBIVOLOL [Suspect]
     Indication: HYPERTENSION
  6. ALISKIREN [Suspect]
     Indication: HYPERTENSION

REACTIONS (1)
  - ERECTILE DYSFUNCTION [None]
